FAERS Safety Report 7004280-8 (Version None)
Quarter: 2010Q3

REPORT INFORMATION
  Report Type: 
  Country: None (occurrence: None)
  Receive Date: 20100921
  Receipt Date: 20100909
  Transmission Date: 20110219
  Serious: Yes (Hospitalization)
  Sender: FDA-Public Use
  Company Number: US-BIOGENIDEC-2010BI027911

PATIENT
  Age: 73 Year
  Sex: Male

DRUGS (17)
  1. TYSABRI [Suspect]
     Indication: MULTIPLE SCLEROSIS
     Route: 042
     Dates: start: 20100309, end: 20100706
  2. AMANTADINE [Concomitant]
  3. BACLOFEN [Concomitant]
  4. CIPROFLOXACIN [Concomitant]
  5. DILTIAZEM [Concomitant]
  6. DOCUSATE [Concomitant]
  7. IRON [Concomitant]
  8. GABAPENTIN [Concomitant]
  9. GLIPIZIDE [Concomitant]
  10. HYDROCHLOROTHIAZIDE [Concomitant]
  11. METFORMIN [Concomitant]
  12. OXYBUTYNIN [Concomitant]
  13. OMEPRAZOLE [Concomitant]
  14. SIMVASTATIN [Concomitant]
  15. SORBITIOL [Concomitant]
  16. SENNA [Concomitant]
  17. TAMSULOSIN HCL [Concomitant]

REACTIONS (5)
  - DEHYDRATION [None]
  - DYSPHAGIA [None]
  - PNEUMONIA STAPHYLOCOCCAL [None]
  - PSEUDOMONAS BRONCHITIS [None]
  - URINARY TRACT INFECTION [None]
